FAERS Safety Report 24700116 (Version 2)
Quarter: 2024Q4

REPORT INFORMATION
  Report Type: Spontaneous
  Country: IT (occurrence: IT)
  Receive Date: 20241205
  Receipt Date: 20241210
  Transmission Date: 20250115
  Serious: Yes (Death, Life-Threatening, Hospitalization)
  Sender: RANBAXY
  Company Number: IT-MINISAL02-1008528

PATIENT
  Age: 15 Year
  Sex: Female

DRUGS (4)
  1. OLANZAPINE [Suspect]
     Active Substance: OLANZAPINE
     Indication: Product used for unknown indication
     Dosage: 16 DOSAGE FORM
     Route: 065
  2. COLCHICINE [Suspect]
     Active Substance: COLCHICINE
     Indication: Product used for unknown indication
     Dosage: 40 DOSAGE FORM
     Route: 048
  3. ACETAMINOPHEN [Suspect]
     Active Substance: ACETAMINOPHEN
     Indication: Product used for unknown indication
     Dosage: 16 DOSAGE FORM
     Route: 048
  4. DICLOFENAC SODIUM [Suspect]
     Active Substance: DICLOFENAC SODIUM
     Indication: Product used for unknown indication
     Dosage: 10 DOSAGE FORM
     Route: 048

REACTIONS (3)
  - Toxicity to various agents [Fatal]
  - Medication error [Fatal]
  - Overdose [Fatal]

NARRATIVE: CASE EVENT DATE: 20241009
